FAERS Safety Report 8124261-0 (Version None)
Quarter: 2012Q1

REPORT INFORMATION
  Report Type: 
  Country: None (occurrence: None)
  Receive Date: 20120209
  Receipt Date: 20120131
  Transmission Date: 20120608
  Serious: Yes (Hospitalization)
  Sender: FDA-Public Use
  Company Number: US-BAYER-2011-045924

PATIENT
  Age: 24 Year
  Sex: Female
  Weight: 99.773 kg

DRUGS (5)
  1. NICODERM [Concomitant]
     Dosage: UNK
     Route: 061
     Dates: start: 20090630
  2. MIDOL EXTENDED RELIEF CAPLETS [Concomitant]
     Indication: DYSMENORRHOEA
     Dosage: UNK
     Route: 048
     Dates: start: 20090604
  3. DROSPIRENONE AND ETHINYL ESTRADIOL [Suspect]
     Indication: PREMENSTRUAL SYNDROME
     Dosage: UNK
     Dates: start: 20090626, end: 20090727
  4. NAPROXEN [Concomitant]
     Indication: DYSMENORRHOEA
     Dosage: UNK
     Dates: start: 20090601, end: 20100601
  5. IBUPROFEN [Concomitant]
     Dosage: UNK
     Dates: start: 20090101

REACTIONS (8)
  - ANHEDONIA [None]
  - PAIN [None]
  - GENERAL PHYSICAL HEALTH DETERIORATION [None]
  - DEEP VEIN THROMBOSIS [None]
  - VENOUS THROMBOSIS [None]
  - EMOTIONAL DISTRESS [None]
  - INJURY [None]
  - ANXIETY [None]
